FAERS Safety Report 24995592 (Version 1)
Quarter: 2025Q1

REPORT INFORMATION
  Report Type: Report from Study
  Country: US (occurrence: US)
  Receive Date: 20250221
  Receipt Date: 20250221
  Transmission Date: 20250409
  Serious: Yes (Hospitalization)
  Sender: VERTEX
  Company Number: US-VERTEX PHARMACEUTICALS-2025-002722

PATIENT
  Age: 48 Year
  Sex: Female

DRUGS (15)
  1. TRIKAFTA [Suspect]
     Active Substance: ELEXACAFTOR\IVACAFTOR\TEZACAFTOR
     Indication: Cystic fibrosis
     Dosage: 2 TABS IN AM; 1 TAB IN PM
     Route: 048
     Dates: start: 20220316
  2. IMURAN [Concomitant]
     Active Substance: AZATHIOPRINE
  3. PREDNISONE [Concomitant]
     Active Substance: PREDNISONE
  4. TACROLIMUS [Concomitant]
     Active Substance: TACROLIMUS
  5. ZYRTEC [Concomitant]
     Active Substance: CETIRIZINE HYDROCHLORIDE
  6. CALCIUM\CHOLECALCIFEROL [Concomitant]
     Active Substance: CALCIUM\CHOLECALCIFEROL
  7. FERROUS SULFATE [Concomitant]
     Active Substance: FERROUS SULFATE
  8. GABAPENTIN [Concomitant]
     Active Substance: GABAPENTIN
  9. NOVOLOG [Concomitant]
     Active Substance: INSULIN ASPART
  10. PEPCID [Concomitant]
     Active Substance: FAMOTIDINE
  11. SYNTHROID [Concomitant]
     Active Substance: LEVOTHYROXINE SODIUM
  12. URSODIOL [Concomitant]
     Active Substance: URSODIOL
  13. XOPENEX HFA [Concomitant]
     Active Substance: LEVALBUTEROL TARTRATE
  14. ZENPEP [Concomitant]
     Active Substance: PANCRELIPASE AMYLASE\PANCRELIPASE LIPASE\PANCRELIPASE PROTEASE
  15. ZINC [Concomitant]
     Active Substance: ZINC

REACTIONS (2)
  - Pneumonia [Recovering/Resolving]
  - Influenza [Recovering/Resolving]

NARRATIVE: CASE EVENT DATE: 20250130
